FAERS Safety Report 25876222 (Version 1)
Quarter: 2025Q4

REPORT INFORMATION
  Report Type: Spontaneous
  Country: US (occurrence: US)
  Receive Date: 20251003
  Receipt Date: 20251003
  Transmission Date: 20260118
  Serious: Yes (Life-Threatening, Other)
  Sender: SOMERSET THERAPEUTICS, LLC
  Company Number: US-MIT-25-75-US-2025-SOM-LIT-00042

PATIENT
  Age: 26 Year
  Sex: Female

DRUGS (4)
  1. ROPIVACAINE HYDROCHLORIDE [Suspect]
     Active Substance: ROPIVACAINE HYDROCHLORIDE
     Indication: Anaesthesia
     Dosage: 12 ML/HR
     Route: 008
  2. LIDOCAINE [Concomitant]
     Active Substance: LIDOCAINE
     Indication: Anaesthesia
     Dosage: 3 ML
     Route: 008
  3. EPINEPHRINE [Concomitant]
     Active Substance: EPINEPHRINE
     Indication: Anaesthesia
     Dosage: 1:200,000
     Route: 008
  4. FENTANYL [Concomitant]
     Active Substance: FENTANYL
     Indication: Anaesthesia
     Dosage: 100 MCG
     Route: 065

REACTIONS (4)
  - Unresponsive to stimuli [Recovered/Resolved]
  - Respiratory depression [Recovered/Resolved]
  - Hypotension [Recovered/Resolved]
  - Maternal exposure during delivery [Unknown]
